FAERS Safety Report 24820595 (Version 4)
Quarter: 2025Q1

REPORT INFORMATION
  Report Type: Spontaneous
  Country: JP (occurrence: JP)
  Receive Date: 20250108
  Receipt Date: 20250326
  Transmission Date: 20250409
  Serious: Yes (Disabling, Other)
  Sender: Visiox
  Company Number: JP-SANTEN-2024-AER-00549

PATIENT
  Age: 67 Year
  Sex: Female

DRUGS (2)
  1. OMIDENEPAG ISOPROPYL [Suspect]
     Active Substance: OMIDENEPAG ISOPROPYL
     Indication: Glaucoma
     Dosage: 1 DROP ONCE A DAY, IN THE RIGHT EYE
     Route: 047
     Dates: start: 20221029, end: 20241102
  2. OMIDENEPAG ISOPROPYL [Suspect]
     Active Substance: OMIDENEPAG ISOPROPYL
     Dosage: 1 DROP ONCE DAILY, BOTH EYES
     Route: 047
     Dates: start: 20221126, end: 20241102

REACTIONS (3)
  - Cataract [Unknown]
  - Glaucoma [Unknown]
  - Macular oedema [Not Recovered/Not Resolved]

NARRATIVE: CASE EVENT DATE: 20241205
